FAERS Safety Report 26012732 (Version 1)
Quarter: 2025Q4

REPORT INFORMATION
  Report Type: Spontaneous
  Country: US (occurrence: US)
  Receive Date: 20251107
  Receipt Date: 20251107
  Transmission Date: 20260117
  Serious: No
  Sender: XERIS PHARMACEUTICALS
  Company Number: US-BRIAN CONNER SVP QUALITY AND CHIEF COMPLIANCE OFFICER-2025XER00056

PATIENT
  Age: 71 Year
  Sex: Male
  Weight: 77.111 kg

DRUGS (3)
  1. GVOKE [Suspect]
     Active Substance: GLUCAGON
     Indication: Blood glucose decreased
     Dosage: UNK UNK, ONCE IN THE MORNING ON AN EMPTY STOMACH
     Route: 058
     Dates: start: 202501, end: 202501
  2. INSULIN NOS [Concomitant]
     Active Substance: INSULIN NOS
  3. UNSPECIFIED INGREDIENT [Concomitant]
     Active Substance: UNSPECIFIED INGREDIENT

REACTIONS (2)
  - Drug ineffective [Recovered/Resolved]
  - Intentional product misuse [Recovered/Resolved]

NARRATIVE: CASE EVENT DATE: 20250101
